FAERS Safety Report 5142746-6 (Version None)
Quarter: 2006Q4

REPORT INFORMATION
  Report Type: 
  Country: None (occurrence: None)
  Receive Date: 20061027
  Receipt Date: 20061011
  Transmission Date: 20070319
  Serious: Yes (Death, Hospitalization)
  Sender: FDA-Public Use
  Company Number: 230885

PATIENT
  Age: 54 Year
  Sex: Female
  Weight: 82 kg

DRUGS (8)
  1. HERCEPTIN [Suspect]
     Indication: BREAST CANCER METASTATIC
     Dosage: 400 MG/KG, INTRAVENOUS
     Route: 042
     Dates: start: 20060718
  2. DOCETAXEL (DOCETAXEL) [Suspect]
     Indication: BREAST CANCER METASTATIC
     Dosage: SEE IMAGE
     Route: 042
     Dates: start: 20061003
  3. DICLOFENAC SODIUM [Concomitant]
  4. .......... [Concomitant]
  5. METOPROLOL TARTRATE [Concomitant]
  6. AMOXICILLIN + CLAVULANATE POTASSIUM [Concomitant]
  7. CEFUROXIME [Concomitant]
  8. THIAMAZOLE                 (METHIMAZOLE) [Concomitant]

REACTIONS (13)
  - CENTRAL LINE INFECTION [None]
  - HAEMATOCRIT DECREASED [None]
  - HAEMOGLOBIN DECREASED [None]
  - LYMPHANGITIS [None]
  - MEAN CELL HAEMOGLOBIN CONCENTRATION DECREASED [None]
  - MEAN PLATELET VOLUME DECREASED [None]
  - METASTASES TO LUNG [None]
  - PNEUMONIA [None]
  - PYREXIA [None]
  - RED CELL DISTRIBUTION WIDTH INCREASED [None]
  - RIB FRACTURE [None]
  - SEPSIS [None]
  - STAPHYLOCOCCAL INFECTION [None]
